FAERS Safety Report 6754688-0 (Version None)
Quarter: 2010Q2

REPORT INFORMATION
  Report Type: 
  Country: None (occurrence: None)
  Receive Date: 20100603
  Receipt Date: 20100521
  Transmission Date: 20101027
  Serious: Yes (Death)
  Sender: FDA-Public Use
  Company Number: DE-SHIRE-SPV1-2010-00954

PATIENT
  Sex: Male
  Weight: 3.77 kg

DRUGS (16)
  1. VELAGLUCERASE ALFA [Suspect]
     Indication: GAUCHER'S DISEASE
     Dosage: UNK, 1X/WEEK
     Route: 042
     Dates: start: 20100401, end: 20100428
  2. PREDNISOLONE [Concomitant]
     Indication: HEPATOSPLENOMEGALY
     Dosage: UNK, UNK
     Dates: start: 20100101
  3. LASIX [Concomitant]
     Dosage: 2 MG, UNK
     Route: 048
  4. VITAMIN E                          /00110501/ [Concomitant]
     Dosage: 200 UNK, UNK
     Route: 048
  5. KANAVIT                            /00032401/ [Concomitant]
     Dosage: 2 GTT, OTHER
     Route: 048
  6. VITADRAL [Concomitant]
     Dosage: 2 GTT, UNK
     Route: 048
  7. LEVOTHYROXINE SODIUM [Concomitant]
     Dosage: 15 UG, UNK
     Route: 048
  8. ALDACTONE [Concomitant]
     Dosage: 3 MG, UNK
     Route: 048
  9. ESIDRIX [Concomitant]
     Dosage: 2 MG, UNK
     Route: 048
  10. LACTULOSE [Concomitant]
     Dosage: 2 ML, UNK
     Route: 048
  11. POTASSIUM CHLORIDE [Concomitant]
     Dosage: .5 ML, UNK
     Route: 048
  12. URSO FALK [Concomitant]
     Dosage: 30 MG, UNK
     Route: 048
  13. VIGANTOLETTEN [Concomitant]
     Dosage: 1.5 IU, UNK
     Route: 048
  14. D-FLUORETTEN                       /00364201/ [Concomitant]
     Dosage: 500 IU, UNK
     Route: 048
  15. CLAFORAN                           /00497602/ [Concomitant]
     Dosage: 190 MG, UNK
     Route: 042
  16. VANCOMYCIN [Concomitant]
     Dosage: 40 MG, UNK
     Route: 042

REACTIONS (1)
  - GAUCHER'S DISEASE [None]
